FAERS Safety Report 5174341-7 (Version None)
Quarter: 2006Q4

REPORT INFORMATION
  Report Type: 
  Country: None (occurrence: None)
  Receive Date: 20061206
  Receipt Date: 20061113
  Transmission Date: 20070319
  Serious: Yes (Other)
  Sender: FDA-Public Use
  Company Number: ENTC2006-0336

PATIENT
  Age: 72 Year
  Sex: Male

DRUGS (1)
  1. STALEVO 50 [Suspect]
     Indication: PARKINSON'S DISEASE
     Dosage: 600 MG, 4 IN 1 D, ORAL
     Route: 048
     Dates: start: 20060901

REACTIONS (2)
  - CONFUSIONAL STATE [None]
  - DRUG DISPENSING ERROR [None]
